FAERS Safety Report 8403216-2 (Version None)
Quarter: 2012Q2

REPORT INFORMATION
  Report Type: 
  Country: None (occurrence: None)
  Receive Date: 20120601
  Receipt Date: 20120523
  Transmission Date: 20120825
  Serious: Yes (Disabling)
  Sender: FDA-Public Use
  Company Number: US-MERCK-1205USA04988

PATIENT
  Age: 80 Year
  Sex: Female

DRUGS (1)
  1. FOSAMAX [Suspect]
     Route: 048
     Dates: start: 20000901, end: 20100101

REACTIONS (8)
  - DYSPEPSIA [None]
  - BACK PAIN [None]
  - OSTEOPOROSIS [None]
  - CHEST PAIN [None]
  - OSTEONECROSIS OF JAW [None]
  - STRESS FRACTURE [None]
  - MUSCULOSKELETAL PAIN [None]
  - FEMUR FRACTURE [None]
